FAERS Safety Report 23402260 (Version 3)
Quarter: 2024Q3

REPORT INFORMATION
  Report Type: Spontaneous
  Country: US (occurrence: None)
  Receive Date: 20240115
  Receipt Date: 20240729
  Transmission Date: 20241017
  Serious: Yes (Life-Threatening, Hospitalization, Other)
  Sender: ASTRAZENECA
  Company Number: 2024A008209

PATIENT
  Age: 25561 Day
  Sex: Female
  Weight: 134.7 kg

DRUGS (2)
  1. FARXIGA [Suspect]
     Active Substance: DAPAGLIFLOZIN PROPANEDIOL
     Indication: Diabetes mellitus
     Route: 048
     Dates: start: 20220105, end: 20220115
  2. BYDUREON BCISE [Suspect]
     Active Substance: EXENATIDE
     Dosage: UNKNOWN

REACTIONS (17)
  - Immune thrombocytopenia [Recovered/Resolved]
  - Platelet count abnormal [Unknown]
  - Fungal infection [Unknown]
  - Petechiae [Unknown]
  - Laboratory test abnormal [Unknown]
  - Incontinence [Unknown]
  - Vaginal haemorrhage [Unknown]
  - Gingival bleeding [Unknown]
  - Rhinorrhoea [Unknown]
  - Cough [Unknown]
  - Chest pain [Unknown]
  - Lethargy [Unknown]
  - Hyponatraemia [Unknown]
  - Stomatitis [Unknown]
  - Fatigue [Unknown]
  - Urinary tract infection [Unknown]
  - Bacterial vaginosis [Unknown]

NARRATIVE: CASE EVENT DATE: 20220114
